FAERS Safety Report 9639226 (Version 2)
Quarter: 2013Q4

REPORT INFORMATION
  Report Type: Report from Study
  Country: CH (occurrence: CH)
  Receive Date: 20131022
  Receipt Date: 20131106
  Transmission Date: 20140711
  Serious: Yes (Death, Other)
  Sender: FDA-Public Use
  Company Number: CH-ROCHE-1289904

PATIENT
  Age: 78 Year
  Sex: Female

DRUGS (2)
  1. ALTEPLASE [Suspect]
     Indication: PULMONARY EMBOLISM
     Dosage: 1 IN 1 ONCE
     Route: 050
  2. HEPARIN [Suspect]
     Indication: PULMONARY EMBOLISM
     Dosage: ONE DOSE, FOLLOWED BY BOLUSES TO OBTAIN AN ACTIVATED CLOTTING TIME OF CA. 300 SEC
     Route: 042

REACTIONS (3)
  - Cardiac arrest [Fatal]
  - Right ventricular failure [Fatal]
  - Contraindication to medical treatment [Unknown]
